FAERS Safety Report 4628559-X (Version None)
Quarter: 2005Q2

REPORT INFORMATION
  Report Type: 
  Country: None (occurrence: None)
  Receive Date: 20050404
  Receipt Date: 20050324
  Transmission Date: 20051028
  Serious: Yes (Hospitalization, Other)
  Sender: FDA-Public Use
  Company Number: 2005-03-1709

PATIENT
  Age: 80 Year
  Sex: Male

DRUGS (2)
  1. RINDERON (BETAMETHASONE SODIUM PHOSPHATE) OPHTHALMIC SOLUTION ^LIKE CE [Suspect]
     Indication: CORNEAL ENDOTHELIITIS
     Dosage: EYE
     Dates: start: 20000322
  2. PREDNISOLONE ACETATE [Suspect]
     Indication: CORNEAL ENDOTHELIITIS
     Dosage: 20 MG DAILY ORAL
     Route: 048
     Dates: start: 20020301

REACTIONS (5)
  - CORNEAL DEGENERATION [None]
  - CORNEAL EROSION [None]
  - CORNEAL ULCER [None]
  - KERATITIS FUNGAL [None]
  - VITREOUS OPACITIES [None]
